FAERS Safety Report 16274492 (Version 1)
Quarter: 2019Q2

REPORT INFORMATION
  Report Type: Spontaneous
  Country: DK (occurrence: DK)
  Receive Date: 20190504
  Receipt Date: 20190504
  Transmission Date: 20190711
  Serious: Yes (Other)
  Sender: FDA-Public Use
  Company Number: DK-TEVA-2019-DK-1043878

PATIENT
  Age: 57 Year
  Sex: Male

DRUGS (4)
  1. DULOXETINE. [Concomitant]
     Active Substance: DULOXETINE
     Indication: PAIN
     Dosage: DOSAGE: VARYING DOSE.?CONTROL: 30 MG AND 60 MG.
     Route: 048
     Dates: start: 20170602
  2. OXYCODONE [Suspect]
     Active Substance: OXYCODONE
     Indication: PAIN
     Dosage: STRENGTH: 20MG AND AND 10MG.?DOSIS: IT IS ASSESSED THAT THE PATIENT^S USE IS INAPPROPRIATE.
     Route: 048
     Dates: end: 20180723
  3. LYRICA [Concomitant]
     Active Substance: PREGABALIN
     Indication: PAIN
     Dosage: STRENGTH: 75MG AND 25MG
     Route: 048
     Dates: start: 20170505, end: 20170602
  4. TRAMADOL. [Concomitant]
     Active Substance: TRAMADOL
     Indication: PAIN
     Dosage: STRENGTH: 50 MG. DOSAGE: 1 TABLET PER DAY, AT MOST 2 TIMES DAILY.
     Route: 048
     Dates: start: 20161130, end: 20170505

REACTIONS (14)
  - Memory impairment [Unknown]
  - Drug dependence [Unknown]
  - Disturbance in attention [Unknown]
  - Mental disorder [Unknown]
  - Drug withdrawal syndrome [Unknown]
  - Impaired self-care [Unknown]
  - Judgement impaired [Unknown]
  - Cognitive disorder [Unknown]
  - Fatigue [Unknown]
  - Insomnia [Unknown]
  - Depressed mood [Unknown]
  - Intentional product misuse [Unknown]
  - Depression [Not Recovered/Not Resolved]
  - Suicidal ideation [Unknown]

NARRATIVE: CASE EVENT DATE: 201707
